FAERS Safety Report 18438018 (Version 5)
Quarter: 2020Q4

REPORT INFORMATION
  Report Type: Spontaneous
  Country: GB (occurrence: GB)
  Receive Date: 20201028
  Receipt Date: 20201112
  Transmission Date: 20210114
  Serious: Yes (Life-Threatening, Hospitalization, Other)
  Sender: FDA-Public Use
  Company Number: GB-MYLANLABS-2020M1090373

PATIENT
  Age: 31 Year
  Sex: Female

DRUGS (1)
  1. CLOZARIL [Suspect]
     Active Substance: CLOZAPINE
     Indication: SCHIZOPHRENIA
     Dosage: 325 MILLIGRAM, QD (75 MG MANE,250MG NOCTE)
     Route: 048
     Dates: start: 20200903, end: 2020

REACTIONS (5)
  - Leukocytosis [Recovered/Resolved]
  - Agranulocytosis [Recovered/Resolved]
  - Coronavirus infection [Recovered/Resolved]
  - Schizophrenia [Unknown]
  - Neutrophilia [Recovered/Resolved]

NARRATIVE: CASE EVENT DATE: 2020
